FAERS Safety Report 7684031-4 (Version None)
Quarter: 2011Q3

REPORT INFORMATION
  Report Type: 
  Country: None (occurrence: None)
  Receive Date: 20110815
  Receipt Date: 20110808
  Transmission Date: 20111222
  Serious: Yes (Hospitalization)
  Sender: FDA-Public Use
  Company Number: US-US-EMD SERONO, INC.-7076400

PATIENT
  Sex: Female

DRUGS (2)
  1. INTRAVENOUS STEROIDS [Suspect]
     Indication: MULTIPLE SCLEROSIS RELAPSE
  2. REBIF [Suspect]
     Indication: MULTIPLE SCLEROSIS
     Route: 058
     Dates: start: 20050427

REACTIONS (10)
  - MUSCLE CONTRACTURE [None]
  - MULTIPLE SCLEROSIS [None]
  - NAUSEA [None]
  - DECREASED APPETITE [None]
  - FATIGUE [None]
  - DRY SKIN [None]
  - POLLAKIURIA [None]
  - DYSPEPSIA [None]
  - BLOOD GLUCOSE INCREASED [None]
  - HEADACHE [None]
